FAERS Safety Report 15062046 (Version 7)
Quarter: 2018Q4

REPORT INFORMATION
  Report Type: Report from Study
  Country: US (occurrence: US)
  Receive Date: 20180625
  Receipt Date: 20181101
  Transmission Date: 20190204
  Serious: Yes (Death, Hospitalization, Other)
  Sender: FDA-Public Use
  Company Number: US-ACTELION-A-US2018-174170

PATIENT
  Age: 57 Year
  Sex: Female

DRUGS (7)
  1. UPTRAVI [Suspect]
     Active Substance: SELEXIPAG
     Dosage: 600 MCG, BID
     Route: 048
     Dates: end: 20181017
  2. UPTRAVI [Suspect]
     Active Substance: SELEXIPAG
     Dosage: 200 MCG, BID
     Route: 048
     Dates: start: 201806
  3. OPSUMIT [Suspect]
     Active Substance: MACITENTAN
     Indication: PULMONARY ARTERIAL HYPERTENSION
     Dosage: 10 MG, BID
     Route: 048
     Dates: start: 20170630, end: 20181017
  4. ADCIRCA [Concomitant]
     Active Substance: TADALAFIL
     Dosage: 40 MG, QD
     Dates: start: 20180531
  5. UPTRAVI [Suspect]
     Active Substance: SELEXIPAG
     Dosage: 200 MCG, BID
     Route: 048
     Dates: start: 20180531, end: 201806
  6. UPTRAVI [Suspect]
     Active Substance: SELEXIPAG
     Indication: PULMONARY ARTERIAL HYPERTENSION
     Dosage: 400 MCG, BID
     Route: 048
     Dates: start: 20180613
  7. MIDODRINE [Concomitant]
     Active Substance: MIDODRINE

REACTIONS (25)
  - Oxygen saturation decreased [Not Recovered/Not Resolved]
  - Brain oedema [Not Recovered/Not Resolved]
  - Presyncope [Recovered/Resolved]
  - Hyponatraemia [Recovered/Resolved]
  - Blood ketone body increased [Not Recovered/Not Resolved]
  - Blood urea increased [Not Recovered/Not Resolved]
  - Condition aggravated [Unknown]
  - Hypotension [Not Recovered/Not Resolved]
  - Dysphagia [Not Recovered/Not Resolved]
  - Nausea [Recovered/Resolved]
  - Rehabilitation therapy [Unknown]
  - Hypoglycaemia [Not Recovered/Not Resolved]
  - Hypoxia [Not Recovered/Not Resolved]
  - Basal ganglia haemorrhage [Fatal]
  - Chronic kidney disease [Unknown]
  - Lethargy [Not Recovered/Not Resolved]
  - Mental status changes [Recovering/Resolving]
  - Blood lactic acid increased [Not Recovered/Not Resolved]
  - Vomiting [Recovered/Resolved]
  - Respiratory failure [Fatal]
  - Pulmonary arterial hypertension [Unknown]
  - Sarcoidosis [Unknown]
  - Syncope [Recovered/Resolved]
  - Diarrhoea [Recovered/Resolved]
  - Headache [Unknown]

NARRATIVE: CASE EVENT DATE: 20180614
